FAERS Safety Report 26110831 (Version 1)
Quarter: 2025Q4

REPORT INFORMATION
  Report Type: Spontaneous
  Country: US (occurrence: US)
  Receive Date: 20251202
  Receipt Date: 20251202
  Transmission Date: 20260118
  Serious: Yes (Other)
  Sender: Pyros Pharmaceuticals
  Company Number: US-PYROS PHARMACEUTICALS, INC-20251101537

PATIENT
  Age: 2 Year
  Sex: Female

DRUGS (1)
  1. VIGAFYDE [Suspect]
     Active Substance: VIGABATRIN
     Indication: Infantile spasms
     Dosage: 500 MG, BID (5 ML)
     Route: 048
     Dates: start: 20250327

REACTIONS (2)
  - Pneumonia aspiration [Recovered/Resolved]
  - Bronchitis viral [Recovered/Resolved]

NARRATIVE: CASE EVENT DATE: 20251109
